FAERS Safety Report 9981545 (Version 1)
Quarter: 2014Q1

REPORT INFORMATION
  Report Type: Report from Study
  Country: US (occurrence: US)
  Receive Date: 20140307
  Receipt Date: 20140307
  Transmission Date: 20141002
  Serious: No
  Sender: FDA-Public Use
  Company Number: US-ABBVIE-13P-163-1181593-00

PATIENT
  Age: 61 Year
  Sex: Female

DRUGS (7)
  1. HUMIRA [Suspect]
     Indication: RHEUMATOID ARTHRITIS
     Dates: start: 20131121
  2. DICLOFENAC [Concomitant]
     Indication: INFLAMMATION
     Dosage: 1-2 DAILY
  3. METHOTREXATE [Concomitant]
     Indication: RHEUMATOID ARTHRITIS
  4. LANSOPRAZOLE [Concomitant]
     Indication: GASTROOESOPHAGEAL REFLUX DISEASE
  5. SYNTHYROID [Concomitant]
     Indication: HYPOTHYROIDISM
  6. VITAMIN D [Concomitant]
     Indication: VITAMIN SUPPLEMENTATION
  7. CYCLOBENZAPRINE [Concomitant]
     Indication: NERVOUS SYSTEM DISORDER

REACTIONS (4)
  - Oropharyngeal pain [Recovered/Resolved]
  - Cough [Not Recovered/Not Resolved]
  - Nasal congestion [Not Recovered/Not Resolved]
  - Body temperature increased [Not Recovered/Not Resolved]
